FAERS Safety Report 6399975-3 (Version None)
Quarter: 2009Q4

REPORT INFORMATION
  Report Type: 
  Country: None (occurrence: None)
  Receive Date: 20091008
  Receipt Date: 20091008
  Transmission Date: 20100525
  Serious: Yes (Other)
  Sender: FDA-Public Use
  Company Number: None

PATIENT
  Age: 62 Year
  Sex: Male
  Weight: 68.0396 kg

DRUGS (1)
  1. ZOLPIDEM [Suspect]
     Indication: INSOMNIA
     Dosage: 1 BEDTIME PO
     Route: 048
     Dates: start: 20030101, end: 20090109

REACTIONS (2)
  - ABNORMAL BEHAVIOUR [None]
  - AMNESIA [None]
